FAERS Safety Report 19912193 (Version 1)
Quarter: 2021Q4

REPORT INFORMATION
  Report Type: Spontaneous
  Country: US (occurrence: US)
  Receive Date: 20211002
  Receipt Date: 20211002
  Transmission Date: 20220303
  Serious: Yes (Other)
  Sender: FDA-Public Use
  Company Number: None

PATIENT
  Age: 13 Year
  Sex: Male
  Weight: 45 kg

DRUGS (2)
  1. TINACTIN [Suspect]
     Active Substance: TOLNAFTATE
     Indication: Tinea cruris
     Dates: end: 20211001
  2. LOTRIMIN [Suspect]
     Active Substance: CLOTRIMAZOLE

REACTIONS (4)
  - Rash [None]
  - Burning sensation [None]
  - Wound [None]
  - Condition aggravated [None]

NARRATIVE: CASE EVENT DATE: 20210924
